FAERS Safety Report 8369069-6 (Version None)
Quarter: 2012Q2

REPORT INFORMATION
  Report Type: 
  Country: None (occurrence: None)
  Receive Date: 20120518
  Receipt Date: 20120510
  Transmission Date: 20120825
  Serious: Yes (Hospitalization)
  Sender: FDA-Public Use
  Company Number: US-BAYER-2011-116323

PATIENT
  Age: 34 Year
  Sex: Female
  Weight: 121 kg

DRUGS (12)
  1. YAZ [Suspect]
     Indication: MENSTRUAL DISORDER
     Dosage: UNK
     Dates: start: 20061001, end: 20091101
  2. YAZ [Suspect]
     Indication: MENSTRUATION IRREGULAR
  3. AMITRIPTYLINE HCL [Concomitant]
     Indication: MIGRAINE
     Dosage: 10 MG, UNK
     Route: 048
     Dates: start: 20091109, end: 20091116
  4. IBUPROFEN [Concomitant]
     Dosage: UNK
     Route: 048
     Dates: start: 20091117
  5. LEVAQUIN [Concomitant]
     Dosage: 750 MG, QD
     Route: 048
     Dates: start: 20091001, end: 20091005
  6. FLUZONE 2009-10 MDV [Concomitant]
     Dosage: UNK
     Dates: start: 20090929
  7. YAZ [Suspect]
     Indication: PREMENSTRUAL SYNDROME
  8. YAZ [Suspect]
     Indication: CONTRACEPTION
  9. MELOXICAM [Concomitant]
     Dosage: 15 MG, UNK
     Route: 048
     Dates: start: 20091101
  10. VERAMYST [Concomitant]
     Indication: MULTIPLE ALLERGIES
     Dosage: 27.5 ?G, UNK
     Route: 045
     Dates: start: 20091109, end: 20091116
  11. VITAMIN D [Concomitant]
     Indication: VITAMIN D DEFICIENCY
     Dosage: UNK
     Route: 048
     Dates: start: 20091101
  12. MEDROL [Concomitant]
     Dosage: 4 MG, UNK
     Route: 048
     Dates: start: 20091117

REACTIONS (2)
  - PAIN [None]
  - PULMONARY EMBOLISM [None]
